FAERS Safety Report 18757324 (Version 1)
Quarter: 2021Q1

REPORT INFORMATION
  Report Type: Spontaneous
  Country: US (occurrence: US)
  Receive Date: 20210119
  Receipt Date: 20210119
  Transmission Date: 20210419
  Serious: Yes (Death)
  Sender: FDA-Public Use
  Company Number: US-PFIZER INC-2020255809

PATIENT
  Age: 77 Year
  Sex: Male

DRUGS (1)
  1. BRAFTOVI [Suspect]
     Active Substance: ENCORAFENIB
     Dosage: 300MG (SIX 75MG CAPSULES) ONCE DAILY
     Route: 048

REACTIONS (2)
  - Death [Fatal]
  - Product prescribing error [Unknown]

NARRATIVE: CASE EVENT DATE: 20201212
